FAERS Safety Report 7618820-9 (Version None)
Quarter: 2011Q3

REPORT INFORMATION
  Report Type: 
  Country: None (occurrence: None)
  Receive Date: 20110718
  Receipt Date: 20110713
  Transmission Date: 20111222
  Serious: No
  Sender: FDA-Public Use
  Company Number: US-PFIZER INC-2011159831

PATIENT
  Age: 47 Year
  Sex: Female

DRUGS (2)
  1. TOPAMAX [Suspect]
     Dosage: THREE TIMES
  2. PRISTIQ [Suspect]
     Dosage: UNK

REACTIONS (1)
  - WEIGHT DECREASED [None]
